FAERS Safety Report 5767212-6 (Version None)
Quarter: 2008Q2

REPORT INFORMATION
  Report Type: 
  Country: None (occurrence: None)
  Receive Date: 20080611
  Receipt Date: 20080611
  Transmission Date: 20081010
  Serious: No
  Sender: FDA-Public Use
  Company Number: None

PATIENT
  Sex: Female
  Weight: 95.6 kg

DRUGS (6)
  1. CISPLATIN [Suspect]
     Dosage: 99 MG
  2. DOXORUBICIN HYDROCHLORIDE [Suspect]
     Dosage: 89 MG
  3. TAXOL [Suspect]
     Dosage: 317 MG
  4. NEULASTA [Suspect]
     Dosage: 6 MG
  5. COMPAZINE [Concomitant]
  6. DECADRON [Concomitant]

REACTIONS (1)
  - BLOOD MAGNESIUM DECREASED [None]
